FAERS Safety Report 22101895 (Version 1)
Quarter: 2023Q1

REPORT INFORMATION
  Report Type: Spontaneous
  Country: US (occurrence: None)
  Receive Date: 20230315
  Receipt Date: 20230315
  Transmission Date: 20230417
  Serious: No
  Sender: FDA-Public Use
  Company Number: None

PATIENT
  Age: 70 Year
  Sex: Male

DRUGS (1)
  1. ABIRATERONE. [Suspect]
     Active Substance: ABIRATERONE ACETATE
     Indication: Prostate cancer
     Dosage: OTHER FREQUENCY : 2T QD;?
     Route: 048
     Dates: start: 20220202

REACTIONS (4)
  - Pain [None]
  - Headache [None]
  - Dizziness [None]
  - Dyspnoea exertional [None]

NARRATIVE: CASE EVENT DATE: 20230307
